FAERS Safety Report 4650725-8 (Version None)
Quarter: 2005Q2

REPORT INFORMATION
  Report Type: 
  Country: None (occurrence: None)
  Receive Date: 20050429
  Receipt Date: 20050425
  Transmission Date: 20051028
  Serious: Yes (Other)
  Sender: FDA-Public Use
  Company Number: 2005-03-1386

PATIENT
  Age: 76 Year
  Sex: Male
  Weight: 95.2554 kg

DRUGS (3)
  1. CLARITIN [Suspect]
     Indication: URTICARIA
     Dosage: 1-2 TABS QD* ORAL
     Route: 048
     Dates: start: 20050310, end: 20050317
  2. LEUKINE [Suspect]
  3. ASPIRIN [Concomitant]

REACTIONS (1)
  - TACHYCARDIA [None]
